FAERS Safety Report 24437097 (Version 2)
Quarter: 2024Q4

REPORT INFORMATION
  Report Type: Spontaneous
  Country: US (occurrence: US)
  Receive Date: 20241015
  Receipt Date: 20241029
  Transmission Date: 20250114
  Serious: Yes (Other)
  Sender: CSL BEHRING
  Company Number: US-BEH-2024181023

PATIENT
  Age: 67 Year
  Sex: Female
  Weight: 54.42 kg

DRUGS (5)
  1. PRIVIGEN [Suspect]
     Active Substance: HUMAN IMMUNOGLOBULIN G
     Indication: Guillain-Barre syndrome
     Dosage: 1 BOTTLE PER DAY FOR 5 DAYS
     Route: 042
     Dates: start: 20240820, end: 20240825
  2. OTEZLA [Concomitant]
     Active Substance: APREMILAST
  3. HYDROXYCHLOROQUINE [Concomitant]
     Active Substance: HYDROXYCHLOROQUINE
  4. MOBIC [Concomitant]
     Active Substance: MELOXICAM
  5. PENICILLIN V POTASSIUM [Concomitant]
     Active Substance: PENICILLIN V POTASSIUM

REACTIONS (13)
  - Circulatory collapse [Not Recovered/Not Resolved]
  - Peripheral swelling [Not Recovered/Not Resolved]
  - Infusion site swelling [Not Recovered/Not Resolved]
  - Rash [Not Recovered/Not Resolved]
  - Vaginal mucosal blistering [Not Recovered/Not Resolved]
  - Oral mucosal blistering [Not Recovered/Not Resolved]
  - Swelling face [Unknown]
  - Somnolence [Unknown]
  - Dehydration [Unknown]
  - Stomatitis [Unknown]
  - Dry skin [Unknown]
  - Skin fissures [Unknown]
  - Skin burning sensation [Unknown]

NARRATIVE: CASE EVENT DATE: 20240822
